FAERS Safety Report 5891670-X (Version None)
Quarter: 2008Q3

REPORT INFORMATION
  Report Type: 
  Country: None (occurrence: None)
  Receive Date: 20080922
  Receipt Date: 20080911
  Transmission Date: 20090109
  Serious: Yes (Death)
  Sender: FDA-Public Use
  Company Number: CA-PFIZER INC-2006057953

PATIENT
  Sex: Female
  Weight: 67 kg

DRUGS (8)
  1. SU-011,248 [Suspect]
     Indication: GASTROINTESTINAL STROMAL TUMOUR
     Route: 048
     Dates: start: 20060209, end: 20060419
  2. APO-CAL [Concomitant]
     Dosage: FREQ:UNKNOWN
     Route: 048
  3. ACEBUTOLOL [Concomitant]
     Dosage: FREQ:UNKNOWN
     Route: 048
  4. TRANDOLAPRIL [Concomitant]
     Dosage: FREQ:UNKNOWN
     Route: 048
  5. FUROSEMIDE [Concomitant]
     Dosage: FREQ:UNKNOWN
     Route: 048
  6. K-DUR [Concomitant]
     Dosage: FREQ:UNKNOWN
     Route: 048
  7. RISEDRONATE SODIUM [Concomitant]
     Dosage: FREQ:UNKNOWN
     Route: 048
  8. OMEPRAZOLE [Concomitant]
     Dosage: FREQ:UNKNOWN
     Route: 048
     Dates: start: 20060309

REACTIONS (1)
  - HAEMOLYSIS [None]
